FAERS Safety Report 7506968-9 (Version None)
Quarter: 2011Q2

REPORT INFORMATION
  Report Type: 
  Country: None (occurrence: None)
  Receive Date: 20110526
  Receipt Date: 20110321
  Transmission Date: 20111010
  Serious: Yes (Hospitalization)
  Sender: FDA-Public Use
  Company Number: DE-UCBSA-033252

PATIENT
  Sex: Male

DRUGS (17)
  1. VALPROATE SODIUM [Concomitant]
  2. KALINOR [Concomitant]
     Dosage: 3 CAPSULES
  3. CARBAMAZEPINE [Concomitant]
     Dosage: 200
  4. LORAZEPAM [Concomitant]
  5. SEROQUEL [Concomitant]
  6. HALDOL [Concomitant]
     Dosage: 40 DROPS
  7. DOMINAL [Concomitant]
     Dosage: 80 MG AT NIGHT
  8. KALINOR [Concomitant]
     Dosage: 1-0-0
  9. PHENYDAN [Concomitant]
  10. CLONAZEPAM [Concomitant]
  11. KEPPRA [Suspect]
     Dosage: 500 MG: 3-0-3
  12. DECORTIN H [Concomitant]
     Dosage: 1-0-0
  13. DISTRANEURIN [Concomitant]
     Dosage: 6 CAPSULES
  14. LUMINAL [Concomitant]
     Dosage: 100
  15. NEUROTRAT FORTE [Concomitant]
     Dosage: 2 TABLETS
  16. DECORTIN H [Concomitant]
  17. VIMPAT [Concomitant]

REACTIONS (2)
  - SKIN LESION [None]
  - STATUS EPILEPTICUS [None]
